FAERS Safety Report 8045092 (Version 4)
Quarter: 2013Q2

REPORT INFORMATION
  Report Type: Report from Study
  Country: AU (occurrence: AU)
  Receive Date: 20110720
  Receipt Date: 20130425
  Transmission Date: 20140414
  Serious: Yes (Hospitalization, Other)
  Sender: FDA-Public Use
  Company Number: PHHY2011AU61082

PATIENT
  Sex: Female

DRUGS (3)
  1. CLOZARIL [Suspect]
     Indication: SCHIZOAFFECTIVE DISORDER
     Dosage: 600 MG, UNK
     Route: 048
     Dates: start: 19960815
  2. CLOZARIL [Suspect]
     Dosage: 800 MG, UNK
     Route: 048
  3. ZUCLOPENTHIXOL [Concomitant]

REACTIONS (9)
  - Mania [Unknown]
  - Abnormal behaviour [Unknown]
  - Disinhibition [Unknown]
  - Psychiatric symptom [Unknown]
  - Malaise [Unknown]
  - Urine amphetamine positive [Unknown]
  - Alcohol abuse [Unknown]
  - Overweight [Unknown]
  - Substance abuse [Unknown]
